FAERS Safety Report 17104955 (Version 4)
Quarter: 2023Q4

REPORT INFORMATION
  Report Type: Report from Study
  Country: CO (occurrence: CO)
  Receive Date: 20191203
  Receipt Date: 20231230
  Transmission Date: 20240110
  Serious: Yes (Other)
  Sender: FDA-Public Use
  Company Number: None

PATIENT
  Age: 45 Year
  Sex: Female
  Weight: 74 kg

DRUGS (8)
  1. TASIGNA [Suspect]
     Active Substance: NILOTINIB
     Indication: Chronic myeloid leukaemia
     Dosage: 300 MG, Q12H
     Route: 048
  2. TASIGNA [Suspect]
     Active Substance: NILOTINIB
     Dosage: 300 MG, Q12H
     Route: 048
     Dates: start: 201212
  3. TASIGNA [Suspect]
     Active Substance: NILOTINIB
     Dosage: 2 DF, BID
     Route: 048
     Dates: start: 20130101
  4. TASIGNA [Suspect]
     Active Substance: NILOTINIB
     Dosage: 600 MG, QD
     Route: 048
  5. TASIGNA [Suspect]
     Active Substance: NILOTINIB
     Dosage: 400 MG, BID
     Route: 065
  6. ACETAMINOPHEN [Concomitant]
     Active Substance: ACETAMINOPHEN
     Indication: Product used for unknown indication
     Dosage: UNK
     Route: 065
  7. MIGRADOL [Concomitant]
     Indication: Product used for unknown indication
     Dosage: UNK
     Route: 065
  8. METHOCARBAMOL [Concomitant]
     Active Substance: METHOCARBAMOL
     Indication: Product used for unknown indication
     Dosage: UNK
     Route: 065

REACTIONS (11)
  - Glaucoma [Unknown]
  - Vision blurred [Unknown]
  - Spinal pain [Unknown]
  - Leiomyoma [Unknown]
  - Cyst [Unknown]
  - Fear [Unknown]
  - Skin discolouration [Not Recovered/Not Resolved]
  - Tinnitus [Unknown]
  - Fatigue [Unknown]
  - Dizziness [Unknown]
  - Headache [Not Recovered/Not Resolved]

NARRATIVE: CASE EVENT DATE: 20191126
